FAERS Safety Report 17078379 (Version 2)
Quarter: 2019Q4

REPORT INFORMATION
  Report Type: Report from Study
  Country: None (occurrence: CA)
  Receive Date: 20191126
  Receipt Date: 20191129
  Transmission Date: 20200122
  Serious: Yes (Hospitalization)
  Sender: FDA-Public Use
  Company Number: CA-ABBVIE-19K-028-3013450-00

PATIENT
  Age: 51 Year
  Sex: Female

DRUGS (1)
  1. HUMIRA [Suspect]
     Active Substance: ADALIMUMAB
     Indication: HIDRADENITIS
     Route: 058
     Dates: start: 20170627, end: 20190822

REACTIONS (8)
  - Haemorrhage [Unknown]
  - Hepatic cyst [Unknown]
  - Pneumonia [Recovered/Resolved]
  - Blood cholesterol abnormal [Unknown]
  - Alopecia [Unknown]
  - Swelling [Unknown]
  - Abdominal distension [Unknown]
  - Psoriasis [Unknown]

NARRATIVE: CASE EVENT DATE: 201908
